FAERS Safety Report 6570451-8 (Version None)
Quarter: 2010Q1

REPORT INFORMATION
  Report Type: 
  Country: None (occurrence: None)
  Receive Date: 20100204
  Receipt Date: 20090618
  Transmission Date: 20100710
  Serious: Yes (Hospitalization, Other)
  Sender: FDA-Public Use
  Company Number: A0792259A

PATIENT
  Age: 67 Year
  Sex: Female

DRUGS (2)
  1. ARIXTRA [Suspect]
     Indication: AORTIC STENOSIS
     Dosage: 2.5MG PER DAY
     Route: 058
     Dates: start: 20090616
  2. UNSPECIFIED MEDICATIONS [Concomitant]

REACTIONS (1)
  - PLATELET COUNT DECREASED [None]
